APPROVED DRUG PRODUCT: FORFIVO XL
Active Ingredient: BUPROPION HYDROCHLORIDE
Strength: 450MG
Dosage Form/Route: TABLET, EXTENDED RELEASE;ORAL
Application: N022497 | Product #001
Applicant: TWI PHARMACEUTICALS INC
Approved: Nov 10, 2011 | RLD: Yes | RS: Yes | Type: RX

PATENTS:
Patent 7674479 | Expires: Aug 23, 2028